FAERS Safety Report 18248790 (Version 1)
Quarter: 2020Q3

REPORT INFORMATION
  Report Type: Spontaneous
  Country: US (occurrence: US)
  Receive Date: 20200909
  Receipt Date: 20200909
  Transmission Date: 20201103
  Serious: Yes (Hospitalization)
  Sender: FDA-Public Use
  Company Number: US-BRISTOL-MYERS SQUIBB COMPANY-17356080

PATIENT
  Age: 31 Year
  Sex: Male

DRUGS (8)
  1. WARFARIN SODIUM. [Interacting]
     Active Substance: WARFARIN SODIUM
     Dosage: 15 MILLIGRAM, QD
     Route: 048
  2. WARFARIN SODIUM. [Interacting]
     Active Substance: WARFARIN SODIUM
     Dosage: 35 MILLIGRAM, QD
     Route: 048
  3. WARFARIN SODIUM. [Interacting]
     Active Substance: WARFARIN SODIUM
     Dosage: 15 MILLIGRAM, QD
     Route: 048
  4. NAFCILLIN SODIUM. [Interacting]
     Active Substance: NAFCILLIN SODIUM
     Indication: ENDOCARDITIS BACTERIAL
     Dosage: 2 GRAM, Q6H
     Route: 042
  5. WARFARIN SODIUM. [Suspect]
     Active Substance: WARFARIN SODIUM
     Indication: ANTIBIOTIC THERAPY
     Dosage: 10 MG, QD
     Route: 048
  6. DICLOXACILLIN SODIUM. [Interacting]
     Active Substance: DICLOXACILLIN SODIUM
     Indication: ANTIBIOTIC THERAPY
     Dosage: 4 GRAM, QD
     Route: 048
  7. NAFCILLIN SODIUM. [Interacting]
     Active Substance: NAFCILLIN SODIUM
     Dosage: 2 GRAM, Q4H
     Route: 042
  8. WARFARIN SODIUM. [Interacting]
     Active Substance: WARFARIN SODIUM
     Dosage: 25 MILLIGRAM, QD
     Route: 048

REACTIONS (2)
  - Drug interaction [Unknown]
  - Therapeutic response decreased [Unknown]
